FAERS Safety Report 10565899 (Version 1)
Quarter: 2014Q4

REPORT INFORMATION
  Report Type: Spontaneous
  Country: US (occurrence: None)
  Receive Date: 20141104
  Receipt Date: 20141104
  Transmission Date: 20150529
  Serious: Yes (Other)
  Sender: FDA-Public Use
  Company Number: None

PATIENT
  Age: 48 Year
  Sex: Female
  Weight: 56.7 kg

DRUGS (1)
  1. LEVAQUIN [Suspect]
     Active Substance: LEVOFLOXACIN
     Indication: SINUSITIS
     Dosage: TWICE DAILY TAKEN BY MOUTH
     Route: 048

REACTIONS (13)
  - Arthralgia [None]
  - Neuralgia [None]
  - Headache [None]
  - Limb discomfort [None]
  - Pain in extremity [None]
  - Muscular weakness [None]
  - Lethargy [None]
  - Vomiting [None]
  - Vision blurred [None]
  - Joint stiffness [None]
  - Gait disturbance [None]
  - Haematemesis [None]
  - Apathy [None]
